FAERS Safety Report 25906575 (Version 2)
Quarter: 2025Q4

REPORT INFORMATION
  Report Type: Spontaneous
  Country: US (occurrence: US)
  Receive Date: 20251010
  Receipt Date: 20251215
  Transmission Date: 20260118
  Serious: No
  Sender: Kenvue
  Company Number: US-KENVUE-20250909381

PATIENT
  Age: 89 Year
  Sex: Female

DRUGS (1)
  1. TYLENOL [Suspect]
     Active Substance: ACETAMINOPHEN
     Indication: Pain
     Dosage: 1 DOSAGE FORM, THRICE A DAY
     Route: 061
     Dates: start: 20250906

REACTIONS (2)
  - Incorrect dose administered [Unknown]
  - Product commingling [Unknown]

NARRATIVE: CASE EVENT DATE: 20250906
